FAERS Safety Report 8249471-3 (Version None)
Quarter: 2012Q2

REPORT INFORMATION
  Report Type: 
  Country: None (occurrence: None)
  Receive Date: 20120402
  Receipt Date: 20120323
  Transmission Date: 20120825
  Serious: Yes (Other)
  Sender: FDA-Public Use
  Company Number: US-BAYER-2012-020324

PATIENT
  Age: 62 Year
  Sex: Female
  Weight: 55.782 kg

DRUGS (10)
  1. NON ASPIRIN [Concomitant]
     Dosage: UNK UNK, HS
  2. MAGNESIUM ASPARTATE [Concomitant]
     Dosage: 400 MG, OM
  3. CYTOMEL [Concomitant]
     Dosage: 5 MCG/24HR, OM
  4. OXYBUTYNIN CHLORIDE [Concomitant]
     Dosage: 10 %, UNK
  5. BAYER LOW DOSE 81 MG-1 PER DAY [Concomitant]
  6. CLIMARA PRO [Suspect]
     Indication: HORMONE REPLACEMENT THERAPY
     Dosage: UNK
     Dates: start: 20110320, end: 20120220
  7. KLONOPIN [Concomitant]
     Dosage: 25 MG, HS
  8. LIPITOR [Concomitant]
     Dosage: 40 MG, HS
  9. DOXYLAMINE SUCCINATE [Concomitant]
     Dosage: 0.5 DF, HS
  10. VITAMIN D [Concomitant]
     Dosage: 5000 IU, QD

REACTIONS (1)
  - VAGINAL HAEMORRHAGE [None]
